FAERS Safety Report 13822330 (Version 1)
Quarter: 2017Q3

REPORT INFORMATION
  Report Type: Spontaneous
  Country: CA (occurrence: CA)
  Receive Date: 20170801
  Receipt Date: 20170801
  Transmission Date: 20171127
  Serious: Yes (Hospitalization)
  Sender: FDA-Public Use
  Company Number: CA-FRESENIUS KABI-FK201706359

PATIENT
  Age: 15 Year
  Sex: Female
  Weight: 40 kg

DRUGS (12)
  1. TRIMETHOPRIM/SULFAMETHOXAZOLE [Concomitant]
     Active Substance: SULFAMETHOXAZOLE\TRIMETHOPRIM
     Indication: BURKHOLDERIA CEPACIA COMPLEX INFECTION
  2. MEROPENEM. [Concomitant]
     Active Substance: MEROPENEM
     Indication: RESPIRATORY DISTRESS
  3. CHLORAMPHENICOL (MANUFACTURER UNKNOWN) [Suspect]
     Active Substance: CHLORAMPHENICOL SODIUM SUCCINATE
     Indication: PYREXIA
     Route: 042
  4. TIGECYCLINE. [Concomitant]
     Active Substance: TIGECYCLINE
     Indication: PYREXIA
     Route: 042
  5. TIGECYCLINE. [Concomitant]
     Active Substance: TIGECYCLINE
     Indication: BURKHOLDERIA CEPACIA COMPLEX INFECTION
  6. MEROPENEM. [Concomitant]
     Active Substance: MEROPENEM
     Indication: PYREXIA
     Route: 065
  7. MEROPENEM. [Concomitant]
     Active Substance: MEROPENEM
     Indication: BURKHOLDERIA CEPACIA COMPLEX INFECTION
  8. CHLORAMPHENICOL (MANUFACTURER UNKNOWN) [Suspect]
     Active Substance: CHLORAMPHENICOL SODIUM SUCCINATE
     Indication: RESPIRATORY DISTRESS
  9. CHLORAMPHENICOL (MANUFACTURER UNKNOWN) [Suspect]
     Active Substance: CHLORAMPHENICOL SODIUM SUCCINATE
     Indication: BURKHOLDERIA CEPACIA COMPLEX INFECTION
  10. TRIMETHOPRIM/SULFAMETHOXAZOLE [Concomitant]
     Active Substance: SULFAMETHOXAZOLE\TRIMETHOPRIM
     Indication: PYREXIA
     Route: 042
  11. TRIMETHOPRIM/SULFAMETHOXAZOLE [Concomitant]
     Active Substance: SULFAMETHOXAZOLE\TRIMETHOPRIM
     Indication: RESPIRATORY DISTRESS
  12. TIGECYCLINE. [Concomitant]
     Active Substance: TIGECYCLINE
     Indication: RESPIRATORY DISTRESS

REACTIONS (2)
  - Lactic acidosis [Recovered/Resolved]
  - Respiratory failure [Recovering/Resolving]
